FAERS Safety Report 21080013 (Version 2)
Quarter: 2022Q4

REPORT INFORMATION
  Report Type: Spontaneous
  Country: JP (occurrence: JP)
  Receive Date: 20220714
  Receipt Date: 20221104
  Transmission Date: 20230113
  Serious: Yes (Other)
  Sender: FDA-Public Use
  Company Number: JP-MSD-M2022-27131

PATIENT
  Age: 39 Year
  Sex: Female

DRUGS (6)
  1. KEYTRUDA [Suspect]
     Active Substance: PEMBROLIZUMAB
     Indication: Triple negative breast cancer
     Dosage: 200 MILLIGRAM, Q3W
     Route: 041
     Dates: start: 20220216, end: 2022
  2. KEYTRUDA [Suspect]
     Active Substance: PEMBROLIZUMAB
     Dosage: 200 MILLIGRAM, Q3W
     Route: 041
     Dates: start: 2022, end: 2022
  3. CARBOPLATIN [Concomitant]
     Active Substance: CARBOPLATIN
     Indication: Triple negative breast cancer
     Dosage: AU2 (TWO DOSES FOLLOWED BY ONE WITHDRAWAL)
     Route: 041
     Dates: start: 20220216, end: 2022
  4. CARBOPLATIN [Concomitant]
     Active Substance: CARBOPLATIN
     Dosage: AU2 (TWO DOSES FOLLOWED BY ONE WITHDRAWAL)
     Route: 041
     Dates: start: 2022
  5. GEMCITABINE HYDROCHLORIDE [Concomitant]
     Active Substance: GEMCITABINE HYDROCHLORIDE
     Indication: Triple negative breast cancer
     Dosage: 1000 MILLIGRAM/SQ. METER(TWO DOSES FOLLOWED BY ONE WITHDRAWAL)
     Route: 041
     Dates: start: 20220216, end: 2022
  6. GEMCITABINE HYDROCHLORIDE [Concomitant]
     Active Substance: GEMCITABINE HYDROCHLORIDE
     Dosage: 1000 MILLIGRAM/SQ. METER
     Route: 041
     Dates: start: 2022

REACTIONS (5)
  - Thrombocytopenia [Unknown]
  - Hyperthyroidism [Recovered/Resolved]
  - Hypothyroidism [Recovered/Resolved]
  - Neutropenia [Unknown]
  - Malignant neoplasm progression [Unknown]

NARRATIVE: CASE EVENT DATE: 20220309
